FAERS Safety Report 23364201 (Version 1)
Quarter: 2024Q1

REPORT INFORMATION
  Report Type: Report from Study
  Country: EG (occurrence: EG)
  Receive Date: 20240104
  Receipt Date: 20240104
  Transmission Date: 20240410
  Serious: Yes (Other)
  Sender: FDA-Public Use
  Company Number: EG-002147023-NVSC2020EG297985

PATIENT
  Age: 8 Year
  Sex: Female
  Weight: 50 kg

DRUGS (8)
  1. OMNITROPE [Suspect]
     Active Substance: SOMATROPIN
     Indication: Growth hormone deficiency
     Dosage: 1 MG, QD, 1 MG/DAY THEN  INCREASED TO 2  MG/DAY DUE TO  NORMAL GROWTH
     Route: 058
     Dates: start: 20231105
  2. OMNITROPE [Suspect]
     Active Substance: SOMATROPIN
     Dosage: 2 MG, QD, 1 MG/DAY THEN  INCREASED TO 2  MG/DAY DUE TO  NORMAL GROWTH
     Route: 058
  3. OMNITROPE [Suspect]
     Active Substance: SOMATROPIN
     Indication: Growth hormone deficiency
     Dosage: 1 MG/DAY THEN  INCREASED TO 2  MG/DAY DUE TO  NORMAL GROWTH
     Route: 058
     Dates: start: 20200704, end: 20201105
  4. OMNITROPE [Suspect]
     Active Substance: SOMATROPIN
     Dosage: 1 MG/DAY THEN  INCREASED TO 2  MG/DAY DUE TO  NORMAL GROWTH
     Route: 058
     Dates: start: 20221018
  5. OMNITROPE [Suspect]
     Active Substance: SOMATROPIN
     Dosage: UNK
     Route: 065
  6. CALCIUM [Concomitant]
     Active Substance: CALCIUM
     Indication: Malnutrition
     Dosage: (5CM/DAY) (STARTED WITH OMNITROPE AND STOPPED AFTER 1 MONTH)
     Route: 048
  7. Decapreno [Concomitant]
     Indication: Malnutrition
     Dosage: 1 ML, QD (STARTED WITH OMNITROPE AND STOPPED AFTER 1 MONTH)
     Route: 048
  8. ZINC [Concomitant]
     Active Substance: PYRITHIONE ZINC\ZINC\ZINC CHLORIDE
     Indication: Malnutrition
     Dosage: (5CM/DAY) (STARTED WITH OMNITROPE AND STOPPED AFTER 1 MONTH)
     Route: 065

REACTIONS (8)
  - Acne [Not Recovered/Not Resolved]
  - Wrong product administered [Not Recovered/Not Resolved]
  - Product use in unapproved indication [Unknown]
  - Expired device used [Unknown]
  - Incorrect dose administered [Unknown]
  - Wrong technique in product usage process [Unknown]
  - Product dose omission issue [Unknown]
  - Wrong technique in product usage process [Unknown]

NARRATIVE: CASE EVENT DATE: 20200704
